FAERS Safety Report 16259445 (Version 2)
Quarter: 2019Q2

REPORT INFORMATION
  Report Type: Report from Study
  Country: GB (occurrence: GB)
  Receive Date: 20190501
  Receipt Date: 20190508
  Transmission Date: 20190711
  Serious: Yes (Hospitalization)
  Sender: FDA-Public Use
  Company Number: GB-ROCHE-2309075

PATIENT
  Age: 73 Year
  Sex: Male
  Weight: 62 kg

DRUGS (6)
  1. GEMCITABINE [Suspect]
     Active Substance: GEMCITABINE\GEMCITABINE HYDROCHLORIDE
     Indication: DIFFUSE LARGE B-CELL LYMPHOMA
     Dosage: DATE OF MOST RECENT DOSE OF GEMCITABINE (1800 MG) PRIOR TO SERIOUS ADVERSE EVENT: 12/APR/2019
     Route: 065
     Dates: start: 20190315
  2. G-CSF [Suspect]
     Active Substance: GRANULOCYTE COLONY-STIMULATING FACTOR NOS
     Indication: DIFFUSE LARGE B-CELL LYMPHOMA
     Dosage: DATE OF MOST RECENT DOSE (300 MCG) PRIOR TO SAE ONSET: 22/APR/2019
     Route: 065
     Dates: start: 20190318
  3. ATEZOLIZUMAB. [Suspect]
     Active Substance: ATEZOLIZUMAB
     Indication: DIFFUSE LARGE B-CELL LYMPHOMA
     Dosage: DATE OF MOST RECENT DOSE OF ATEZOLIZUMAB (840 MG) PRIOR TO SERIOUS ADVERSE EVENT: 12/APR/2019
     Route: 042
     Dates: start: 20190412
  4. RITUXIMAB. [Suspect]
     Active Substance: RITUXIMAB
     Indication: DIFFUSE LARGE B-CELL LYMPHOMA
     Dosage: DATE OF MOST RECENT DOSE OF RITUXIMAB (1400 MG) PRIOR TO SERIOUS ADVERSE EVENT: 12/APR/2019
     Route: 042
     Dates: start: 20190314
  5. OXALIPLATIN. [Suspect]
     Active Substance: OXALIPLATIN
     Indication: DIFFUSE LARGE B-CELL LYMPHOMA
     Dosage: DATE OF MOST RECENT DOSE OF OXALIPLATIN (1800 MG) PRIOR TO SERIOUS ADVERSE EVENT: 12/APR/2019
     Route: 065
     Dates: start: 20190315
  6. SANDO K [POTASSIUM BICARBONATE;POTASSIUM CHLORIDE] [Concomitant]

REACTIONS (2)
  - Dehydration [Not Recovered/Not Resolved]
  - Syncope [Not Recovered/Not Resolved]

NARRATIVE: CASE EVENT DATE: 20190423
